FAERS Safety Report 10089601 (Version 2)
Quarter: 2014Q2

REPORT INFORMATION
  Report Type: Spontaneous
  Country: US (occurrence: US)
  Receive Date: 20140421
  Receipt Date: 20140421
  Transmission Date: 20141212
  Serious: Yes (Hospitalization, Other)
  Sender: FDA-Public Use
  Company Number: US-GILEAD-2014-0093151

PATIENT
  Sex: Female

DRUGS (10)
  1. LETAIRIS [Suspect]
     Indication: PULMONARY ARTERIAL HYPERTENSION
     Dosage: 10 MG, QD
     Route: 065
     Dates: start: 20130807, end: 20140124
  2. FLONASE                            /00972202/ [Concomitant]
  3. PREVACID [Concomitant]
  4. DIGOXIN [Concomitant]
  5. VELETRI [Concomitant]
  6. ZOFRAN                             /00955302/ [Concomitant]
  7. LYRICA [Concomitant]
  8. SPIRONOLACTONE [Concomitant]
  9. PHENERGAN                          /00033001/ [Concomitant]
  10. OMEPRAZOLE [Concomitant]

REACTIONS (3)
  - Crohn^s disease [Unknown]
  - Vomiting [Unknown]
  - Asthenia [Unknown]
